FAERS Safety Report 8095006-8 (Version None)
Quarter: 2012Q1

REPORT INFORMATION
  Report Type: 
  Country: None (occurrence: None)
  Receive Date: 20120131
  Receipt Date: 20120131
  Transmission Date: 20120608
  Serious: Yes (Other)
  Sender: FDA-Public Use
  Company Number: None

PATIENT
  Age: 64 Year
  Sex: Female
  Weight: 90.718 kg

DRUGS (1)
  1. SINGULAIR [Suspect]
     Indication: ASTHMA
     Dosage: 2.5 MG
     Route: 048
     Dates: start: 20100101, end: 20100105

REACTIONS (4)
  - DISORIENTATION [None]
  - CONFUSIONAL STATE [None]
  - ABNORMAL DREAMS [None]
  - AMNESIA [None]
